FAERS Safety Report 15782759 (Version 1)
Quarter: 2019Q1

REPORT INFORMATION
  Report Type: Spontaneous
  Country: GB (occurrence: GB)
  Receive Date: 20190102
  Receipt Date: 20190102
  Transmission Date: 20190417
  Serious: Yes (Other)
  Sender: FDA-Public Use
  Company Number: GB-PFIZER INC-2018531579

PATIENT
  Age: 69 Year
  Sex: Female

DRUGS (1)
  1. CARBOPLATIN. [Suspect]
     Active Substance: CARBOPLATIN
     Dosage: UNK
     Dates: start: 20181008

REACTIONS (5)
  - Malaise [Unknown]
  - Flushing [Unknown]
  - Feeling hot [Unknown]
  - Paraesthesia [Unknown]
  - Syncope [Unknown]

NARRATIVE: CASE EVENT DATE: 20181008
